FAERS Safety Report 22142735 (Version 1)
Quarter: 2023Q1

REPORT INFORMATION
  Report Type: Spontaneous
  Country: IT (occurrence: IT)
  Receive Date: 20230327
  Receipt Date: 20230327
  Transmission Date: 20230418
  Serious: Yes (Other)
  Sender: FDA-Public Use
  Company Number: None

PATIENT
  Age: 57 Year
  Sex: Female

DRUGS (2)
  1. PAROXETINE [Suspect]
     Active Substance: PAROXETINE
     Indication: Major depression
     Dosage: 40 MILLIGRAM (TAKES 2 TABLET TOGETHER)
     Route: 048
     Dates: start: 20230212
  2. EN [Suspect]
     Active Substance: DELORAZEPAM
     Indication: Major depression
     Dosage: 1.5 MILLIGRAM (TAKES 3 EN 0.5 MG TABLET TOGETHER)
     Route: 048
     Dates: start: 20230212

REACTIONS (2)
  - Toxicity to various agents [Recovered/Resolved]
  - Drug abuse [Recovered/Resolved]

NARRATIVE: CASE EVENT DATE: 20230212
